FAERS Safety Report 5057918-9 (Version None)
Quarter: 2006Q3

REPORT INFORMATION
  Report Type: 
  Country: None (occurrence: None)
  Receive Date: 20060721
  Receipt Date: 20060403
  Transmission Date: 20061208
  Serious: No
  Sender: FDA-Public Use
  Company Number: US-GLAXOSMITHKLINE-A0600084A

PATIENT
  Age: 41 Year
  Sex: Male

DRUGS (10)
  1. AVANDIA [Suspect]
     Dosage: 4MG TWICE PER DAY
     Route: 048
  2. LISINOPRIL [Concomitant]
  3. NORVASC [Concomitant]
  4. DEPAKOTE [Concomitant]
  5. TRAZODONE HCL [Concomitant]
  6. GEODON [Concomitant]
  7. BENZODIAZEPINE [Concomitant]
  8. UNKNOWN MEDICATION [Concomitant]
  9. THIOTHIXENE [Concomitant]
  10. LITHIUM CARBONATE [Concomitant]

REACTIONS (3)
  - BLOOD GLUCOSE INCREASED [None]
  - OVERDOSE [None]
  - PHARMACEUTICAL PRODUCT COMPLAINT [None]
